FAERS Safety Report 11878321 (Version 2)
Quarter: 2016Q1

REPORT INFORMATION
  Report Type: Spontaneous
  Country: US (occurrence: US)
  Receive Date: 20151230
  Receipt Date: 20160303
  Transmission Date: 20160526
  Serious: No
  Sender: FDA-Public Use
  Company Number: US-B.I. PHARMACEUTICALS,INC./RIDGEFIELD-2015-BI-71321BP

PATIENT
  Age: 66 Year
  Sex: Male
  Weight: 83 kg

DRUGS (1)
  1. SPIRIVA [Suspect]
     Active Substance: TIOTROPIUM BROMIDE MONOHYDRATE
     Indication: BRONCHITIS CHRONIC
     Dosage: 36 MCG
     Route: 055
     Dates: start: 2014

REACTIONS (4)
  - Weight increased [Unknown]
  - Chest injury [Recovered/Resolved]
  - Product quality issue [Unknown]
  - Bronchitis [Unknown]

NARRATIVE: CASE EVENT DATE: 201505
